FAERS Safety Report 6291618-2 (Version None)
Quarter: 2009Q3

REPORT INFORMATION
  Report Type: 
  Country: None (occurrence: None)
  Receive Date: 20090730
  Receipt Date: 20090722
  Transmission Date: 20100115
  Serious: Yes (Other)
  Sender: FDA-Public Use
  Company Number: JP-ASTRAZENECA-2009SE05697

PATIENT
  Age: 73 Year
  Sex: Male
  Weight: 48 kg

DRUGS (2)
  1. ANAPEINE [Suspect]
     Indication: PAIN MANAGEMENT
     Route: 053
  2. ANAPEINE [Suspect]
     Route: 053

REACTIONS (1)
  - PERONEAL NERVE PALSY [None]
